FAERS Safety Report 9828556 (Version 1)
Quarter: 2014Q1

REPORT INFORMATION
  Report Type: Spontaneous
  Country: US (occurrence: US)
  Receive Date: 20140117
  Receipt Date: 20140117
  Transmission Date: 20141002
  Serious: No
  Sender: FDA-Public Use
  Company Number: US-PFIZER INC-2014015854

PATIENT
  Age: 49 Year
  Sex: Female
  Weight: 81.6 kg

DRUGS (5)
  1. PRISTIQ [Suspect]
     Indication: DEPRESSION
     Dosage: 50 MG, 1X/DAY
     Route: 048
     Dates: start: 20131218, end: 20131224
  2. PRISTIQ [Suspect]
     Dosage: 100 MG, 1X/DAY
     Route: 048
     Dates: start: 20131225, end: 20140102
  3. PRISTIQ [Suspect]
     Dosage: 50 MG, 1X/DAY
     Route: 048
     Dates: start: 20140103, end: 20140106
  4. TRAZODONE [Concomitant]
     Dosage: UNK
     Dates: start: 20131218
  5. SUBOXONE [Concomitant]
     Indication: SUBSTANCE ABUSE
     Dosage: UNK
     Dates: start: 20131008

REACTIONS (1)
  - Anxiety [Unknown]
